FAERS Safety Report 4296465-9 (Version None)
Quarter: 2004Q1

REPORT INFORMATION
  Report Type: 
  Country: None (occurrence: None)
  Receive Date: 20040126
  Receipt Date: 20030822
  Transmission Date: 20041129
  Serious: No
  Sender: FDA-Public Use
  Company Number: USA030845176

PATIENT
  Sex: Female

DRUGS (2)
  1. STRATTERA [Suspect]
     Dates: start: 20030815, end: 20030801
  2. RITALIN [Concomitant]

REACTIONS (1)
  - EPISTAXIS [None]
